FAERS Safety Report 6916784-4 (Version None)
Quarter: 2010Q3

REPORT INFORMATION
  Report Type: 
  Country: None (occurrence: None)
  Receive Date: 20100809
  Receipt Date: 20100809
  Transmission Date: 20110219
  Serious: No
  Sender: FDA-Public Use
  Company Number: None

PATIENT
  Age: 90 Year
  Sex: Female
  Weight: 77.1115 kg

DRUGS (1)
  1. VENLAFAXINE [Suspect]
     Indication: DEPRESSION
     Dosage: 1 PILL DAILY PO
     Route: 048
     Dates: start: 20100804, end: 20100804

REACTIONS (4)
  - DIZZINESS [None]
  - INSOMNIA [None]
  - NAUSEA [None]
  - VISION BLURRED [None]
